FAERS Safety Report 23782262 (Version 2)
Quarter: 2024Q3

REPORT INFORMATION
  Report Type: Report from Study
  Country: US (occurrence: US)
  Receive Date: 20240425
  Receipt Date: 20240702
  Transmission Date: 20241017
  Serious: Yes (Other)
  Sender: ABBVIE
  Company Number: US-ABBVIE-5733298

PATIENT
  Age: 62 Year
  Sex: Female

DRUGS (3)
  1. HUMIRA [Suspect]
     Active Substance: ADALIMUMAB
     Indication: Product used for unknown indication
     Dosage: FORM STRENGTH: 40 MILLIGRAM, CITRATE FREE?FIRST ADMIN DATE: 2023
     Route: 058
     Dates: end: 202404
  2. HUMIRA [Suspect]
     Active Substance: ADALIMUMAB
     Dosage: FORM STRENGTH: 40 MILLIGRAM, CITRATE FREE
     Route: 058
     Dates: start: 20221021
  3. HUMIRA [Suspect]
     Active Substance: ADALIMUMAB
     Dosage: FORM STRENGTH: 40 MILLIGRAM, CITRATE FREE
     Route: 058
     Dates: start: 20231030

REACTIONS (5)
  - Hand fracture [Recovered/Resolved]
  - Rheumatoid arthritis [Unknown]
  - Infection [Recovering/Resolving]
  - Hiatus hernia [Unknown]
  - Shoulder arthroplasty [Unknown]

NARRATIVE: CASE EVENT DATE: 20240401
